FAERS Safety Report 14211124 (Version 1)
Quarter: 2017Q4

REPORT INFORMATION
  Report Type: Spontaneous
  Country: US (occurrence: US)
  Receive Date: 20171121
  Receipt Date: 20171121
  Transmission Date: 20180321
  Serious: Yes (Death, Other)
  Sender: FDA-Public Use
  Company Number: US-CELGENEUS-USA-2015022382

PATIENT

DRUGS (6)
  1. ALISERTIB [Suspect]
     Active Substance: ALISERTIB
     Indication: LYMPHOMA
     Route: 048
  2. ISTODAX [Suspect]
     Active Substance: ROMIDEPSIN
     Indication: LYMPHOMA
     Dosage: 20MG AND 8MG/M2
     Route: 041
  3. ISTODAX [Suspect]
     Active Substance: ROMIDEPSIN
     Dosage: 40MG AND 10MG/M2
     Route: 041
  4. ISTODAX [Suspect]
     Active Substance: ROMIDEPSIN
     Dosage: 40MG AND 12MG/M2
     Route: 041
  5. ISTODAX [Suspect]
     Active Substance: ROMIDEPSIN
     Dosage: 20MG AND 10MG/M2
     Route: 041
  6. ISTODAX [Suspect]
     Active Substance: ROMIDEPSIN
     Dosage: 40MG AND 14MG/M2
     Route: 041

REACTIONS (6)
  - Neutropenia [Unknown]
  - Thrombocytopenia [Unknown]
  - Infection [Unknown]
  - Fatigue [Unknown]
  - Lymphoma [Fatal]
  - Anaemia [Unknown]
